FAERS Safety Report 18448913 (Version 1)
Quarter: 2020Q4

REPORT INFORMATION
  Report Type: Spontaneous
  Country: US (occurrence: US)
  Receive Date: 20201031
  Receipt Date: 20201031
  Transmission Date: 20210114
  Serious: Yes (Other)
  Sender: FDA-Public Use
  Company Number: US-PURDUE PHARMA-USA-2003-0006139

PATIENT
  Sex: Female

DRUGS (1)
  1. OXYCONTIN [Suspect]
     Active Substance: OXYCODONE HYDROCHLORIDE
     Indication: PAIN
     Dosage: UNK UNK, BID
     Route: 048
     Dates: start: 19990519, end: 20000726

REACTIONS (9)
  - Nausea [Unknown]
  - Anxiety [Unknown]
  - Headache [Unknown]
  - Insomnia [Unknown]
  - Unevaluable event [Unknown]
  - Drug dependence [Unknown]
  - Drug withdrawal syndrome [Unknown]
  - Pain [Unknown]
  - Depression [Unknown]
